FAERS Safety Report 8765748 (Version 1)
Quarter: 2012Q4

REPORT INFORMATION
  Report Type: 
  Country: US (occurrence: US)
  Receive Date: 20120904
  Receipt Date: 20120904
  Transmission Date: 20130627
  Serious: No
  Sender: FDA-Public Use
  Company Number: US-PFIZER INC-US-WYE-H18080710

PATIENT
  Sex: Female

DRUGS (3)
  1. PREMPRO [Suspect]
     Dosage: 0.625mg/ 2.5mg, unknown frequency
     Route: 048
  2. PREMPRO [Suspect]
     Dosage: 0.625mg/5mg, unknown frequency
     Route: 048
  3. FENTANYL CITRATE [Suspect]
     Dosage: UNK

REACTIONS (1)
  - Drug ineffective [Unknown]
